FAERS Safety Report 8078070-1 (Version None)
Quarter: 2012Q1

REPORT INFORMATION
  Report Type: 
  Country: None (occurrence: None)
  Receive Date: 20120127
  Receipt Date: 20120122
  Transmission Date: 20120608
  Serious: No
  Sender: FDA-Public Use
  Company Number: US-B.I. PHARMACEUTICALS,INC./RIDGEFIELD-2012-BP-01312BP

PATIENT
  Age: 78 Year
  Sex: Female

DRUGS (2)
  1. MEDICATION NOT FURTHER SPECIFIED [Concomitant]
     Indication: HYPERTENSION
  2. SPIRIVA [Suspect]
     Indication: DYSPNOEA
     Dosage: 18 MCG
     Route: 055
     Dates: start: 20111101, end: 20120119

REACTIONS (7)
  - FLATULENCE [None]
  - PAIN IN EXTREMITY [None]
  - BACK PAIN [None]
  - DYSPEPSIA [None]
  - VISION BLURRED [None]
  - BLOOD PRESSURE INCREASED [None]
  - ABDOMINAL PAIN UPPER [None]
